FAERS Safety Report 4969454-6 (Version None)
Quarter: 2006Q2

REPORT INFORMATION
  Report Type: 
  Country: None (occurrence: None)
  Receive Date: 20060405
  Receipt Date: 20060327
  Transmission Date: 20061013
  Serious: Yes (Hospitalization, Other)
  Sender: FDA-Public Use
  Company Number: 2006043102

PATIENT
  Sex: Female
  Weight: 47.6277 kg

DRUGS (4)
  1. NEURONTIN [Suspect]
     Indication: NEUROPATHY
     Dosage: 300 MG (300 MG, 1 IN 1 D)
  2. GABAPENTIN [Suspect]
     Indication: NEUROPATHY
     Dates: start: 20050101
  3. ANASTROZOLE [Suspect]
     Indication: BREAST CANCER
     Dates: end: 20050901
  4. ALBUTEROL [Concomitant]

REACTIONS (7)
  - ASTHMA [None]
  - DIARRHOEA [None]
  - DIZZINESS [None]
  - INFLUENZA [None]
  - UNEVALUABLE EVENT [None]
  - VIRAL INFECTION [None]
  - VOMITING [None]
